FAERS Safety Report 7770606-0 (Version None)
Quarter: 2011Q3

REPORT INFORMATION
  Report Type: 
  Country: None (occurrence: None)
  Receive Date: 20110922
  Receipt Date: 20110915
  Transmission Date: 20111222
  Serious: Yes (Death, Hospitalization, Other)
  Sender: FDA-Public Use
  Company Number: PHHY2011BR82386

PATIENT
  Sex: Female

DRUGS (1)
  1. EXFORGE [Suspect]
     Indication: HYPERTENSION
     Dosage: 0.5 DF(VALSARTAN, AMLODIPINE), DAILY
     Route: 048

REACTIONS (7)
  - FEMUR FRACTURE [None]
  - INCORRECT DOSE ADMINISTERED [None]
  - DYSPNOEA [None]
  - DECREASED APPETITE [None]
  - FALL [None]
  - SPEECH DISORDER [None]
  - DEATH [None]
